FAERS Safety Report 14192142 (Version 1)
Quarter: 2017Q4

REPORT INFORMATION
  Report Type: Spontaneous
  Country: IT (occurrence: IT)
  Receive Date: 20171115
  Receipt Date: 20171115
  Transmission Date: 20180321
  Serious: Yes (Other)
  Sender: FDA-Public Use
  Company Number: IT-B. BRAUN MEDICAL INC.-2034152

PATIENT
  Age: 48 Year

DRUGS (2)
  1. METRONIDAZOLE. [Suspect]
     Active Substance: METRONIDAZOLE
     Indication: WOUND INFECTION
     Route: 042
     Dates: start: 20170307, end: 20170307
  2. CEFAMEZIN [Suspect]
     Active Substance: CEFAZOLIN
     Route: 042
     Dates: start: 20170307, end: 20170308

REACTIONS (1)
  - Rash [None]
